FAERS Safety Report 21996024 (Version 2)
Quarter: 2023Q1

REPORT INFORMATION
  Report Type: Spontaneous
  Country: DK (occurrence: DK)
  Receive Date: 20230215
  Receipt Date: 20230218
  Transmission Date: 20230417
  Serious: Yes (Other)
  Sender: FDA-Public Use
  Company Number: DK-002147023-NVSC2023DK029437

PATIENT
  Sex: Female

DRUGS (2)
  1. DICLOXACILLIN SODIUM [Suspect]
     Active Substance: DICLOXACILLIN SODIUM
     Indication: Ear infection staphylococcal
     Dosage: 500 MG
     Route: 065
     Dates: start: 20230116
  2. DICLOXACILLIN SODIUM [Suspect]
     Active Substance: DICLOXACILLIN SODIUM
     Dosage: 500 MG
     Route: 065
     Dates: start: 20230123

REACTIONS (5)
  - Ear infection staphylococcal [Unknown]
  - Condition aggravated [Unknown]
  - Skin ulcer [Recovering/Resolving]
  - Cystitis [Unknown]
  - Drug ineffective [Unknown]

NARRATIVE: CASE EVENT DATE: 20230213
